FAERS Safety Report 9719209 (Version 1)
Quarter: 2013Q4

REPORT INFORMATION
  Report Type: Spontaneous
  Country: US (occurrence: US)
  Receive Date: 20131127
  Receipt Date: 20131127
  Transmission Date: 20140711
  Serious: Yes (Other)
  Sender: FDA-Public Use
  Company Number: GXBR2013US002064

PATIENT
  Age: 35 Year
  Sex: Female
  Weight: 81.63 kg

DRUGS (4)
  1. ENOXAPARIN SODIUM [Suspect]
     Indication: COAGULOPATHY
     Dosage: 30 MG, QD
     Route: 058
     Dates: start: 201208, end: 201210
  2. PRENATAL VITAMINS [Concomitant]
     Indication: SUPPLEMENTATION THERAPY
     Dosage: UNK DF, UNK
  3. ESTROGEN NOS [Concomitant]
     Indication: SUPPLEMENTATION THERAPY
     Dosage: UNK DF, UNK
  4. PROGESTERONE [Concomitant]
     Indication: SUPPLEMENTATION THERAPY
     Dosage: UNK DF, UNK

REACTIONS (2)
  - Abortion spontaneous [Recovered/Resolved]
  - Maternal exposure during pregnancy [Recovered/Resolved]
